FAERS Safety Report 15151095 (Version 1)
Quarter: 2018Q3

REPORT INFORMATION
  Report Type: Spontaneous
  Country: US (occurrence: US)
  Receive Date: 20180716
  Receipt Date: 20180716
  Transmission Date: 20181010
  Serious: No
  Sender: FDA-Public Use
  Company Number: US-SA-2018SA187622

PATIENT
  Age: 75 Year
  Sex: Female

DRUGS (3)
  1. LIPITOR [Concomitant]
     Active Substance: ATORVASTATIN CALCIUM
     Dosage: 10 MG, 5 DAYS A WEEK
  2. ALIROCUMAB [Suspect]
     Active Substance: ALIROCUMAB
  3. CRESTOR [Concomitant]
     Active Substance: ROSUVASTATIN CALCIUM
     Dosage: 40 MG

REACTIONS (2)
  - Diarrhoea [Unknown]
  - Abdominal pain [Unknown]
